FAERS Safety Report 11719209 (Version 2)
Quarter: 2015Q4

REPORT INFORMATION
  Report Type: Spontaneous
  Country: FR (occurrence: FR)
  Receive Date: 20151110
  Receipt Date: 20151112
  Transmission Date: 20160304
  Serious: Yes (Hospitalization)
  Sender: FDA-Public Use
  Company Number: FR-BAYER-2015-457438

PATIENT
  Age: 20 Year
  Sex: Female

DRUGS (2)
  1. ADALAT CC [Suspect]
     Active Substance: NIFEDIPINE
     Indication: UTERINE CONTRACTIONS ABNORMAL
     Dosage: 2 MG, BID
     Route: 064
     Dates: start: 20151002, end: 20151012
  2. OROKEN [Suspect]
     Active Substance: CEFIXIME
     Indication: CYSTITIS
     Dosage: UNK
     Route: 064
     Dates: start: 20151005

REACTIONS (1)
  - Foetal arrhythmia [Not Recovered/Not Resolved]

NARRATIVE: CASE EVENT DATE: 20151012
